FAERS Safety Report 8442235-7 (Version None)
Quarter: 2012Q2

REPORT INFORMATION
  Report Type: 
  Country: None (occurrence: None)
  Receive Date: 20120615
  Receipt Date: 20120607
  Transmission Date: 20120825
  Serious: Yes (Death, Hospitalization)
  Sender: FDA-Public Use
  Company Number: TW-BAXTER-2012BAX008075

PATIENT

DRUGS (2)
  1. EXTRANEAL [Suspect]
     Route: 033
  2. DIANEAL LOW CALCIUM WITH DEXTROSE 1.5% AND CALCIUM 2.5MEQ/L [Suspect]
     Route: 033

REACTIONS (1)
  - CARDIOVASCULAR DISORDER [None]
